FAERS Safety Report 12270388 (Version 2)
Quarter: 2016Q2

REPORT INFORMATION
  Report Type: Report from Study
  Country: RU (occurrence: RU)
  Receive Date: 20160415
  Receipt Date: 20160419
  Transmission Date: 20160815
  Serious: Yes (Other)
  Sender: FDA-Public Use
  Company Number: RU-ROCHE-1740217

PATIENT

DRUGS (1)
  1. ORLISTAT [Suspect]
     Active Substance: ORLISTAT
     Indication: OBESITY
     Route: 048

REACTIONS (4)
  - Diarrhoea [Unknown]
  - Flatulence [Unknown]
  - Cystitis [Unknown]
  - Haemorrhoids [Unknown]
